FAERS Safety Report 8075275-0 (Version None)
Quarter: 2011Q4

REPORT INFORMATION
  Report Type: 
  Country: None (occurrence: None)
  Receive Date: 20111227
  Receipt Date: 20111108
  Transmission Date: 20120403
  Serious: No
  Sender: FDA-Public Use
  Company Number: PHEH2011US008999

PATIENT
  Age: 48 Year
  Sex: Female
  Weight: 68.5 kg

DRUGS (3)
  1. IRON(IRON) [Concomitant]
  2. GILENYA [Suspect]
     Dosage: 0.5 MG, QD, ORAL
     Route: 048
  3. CLONAZEPAM [Concomitant]

REACTIONS (1)
  - MYALGIA [None]
